FAERS Safety Report 25031799 (Version 1)
Quarter: 2025Q1

REPORT INFORMATION
  Report Type: Spontaneous
  Country: CN (occurrence: CN)
  Receive Date: 20250303
  Receipt Date: 20250303
  Transmission Date: 20250409
  Serious: Yes (Death, Other)
  Sender: JOHNSON AND JOHNSON
  Company Number: CN-JNJFOC-20250271232

PATIENT

DRUGS (1)
  1. BOSENTAN [Suspect]
     Active Substance: BOSENTAN
     Indication: Pulmonary arterial hypertension
     Route: 048

REACTIONS (5)
  - Respiratory failure [Fatal]
  - Pulmonary haemorrhage [Fatal]
  - Arrhythmia [Unknown]
  - Product use issue [Unknown]
  - Ventricular extrasystoles [Unknown]
